FAERS Safety Report 21292117 (Version 1)
Quarter: 2022Q3

REPORT INFORMATION
  Report Type: Spontaneous
  Country: US (occurrence: US)
  Receive Date: 20220904
  Receipt Date: 20220904
  Transmission Date: 20221027
  Serious: Yes (Other)
  Sender: FDA-Public Use
  Company Number: US-ALVOGEN-2022-ALVOGEN-120805

PATIENT
  Age: 32 Year
  Sex: Female

DRUGS (1)
  1. LABETALOL [Suspect]
     Active Substance: LABETALOL\LABETALOL HYDROCHLORIDE
     Indication: Hypertension

REACTIONS (5)
  - Foetal growth restriction [Unknown]
  - Superimposed pre-eclampsia [Unknown]
  - Labile blood pressure [Unknown]
  - Presyncope [Unknown]
  - Exposure during pregnancy [Unknown]
